FAERS Safety Report 21768532 (Version 4)
Quarter: 2025Q3

REPORT INFORMATION
  Report Type: Spontaneous
  Country: EU (occurrence: EU)
  Receive Date: 20221222
  Receipt Date: 20250710
  Transmission Date: 20251021
  Serious: Yes (Hospitalization, Other)
  Sender: JAZZ
  Company Number: EU-GW PHARMA-2022-ES-038158

PATIENT
  Age: 20 Year

DRUGS (4)
  1. CANNABIDIOL [Suspect]
     Active Substance: CANNABIDIOL
     Indication: Lennox-Gastaut syndrome
     Dosage: 160 MILLIGRAM, BID
     Dates: start: 20221107
  2. CANNABIDIOL [Suspect]
     Active Substance: CANNABIDIOL
     Indication: Petit mal epilepsy
  3. CANNABIDIOL [Suspect]
     Active Substance: CANNABIDIOL
     Indication: Tonic convulsion
  4. ETHOSUXIMIDE [Suspect]
     Active Substance: ETHOSUXIMIDE
     Indication: Product used for unknown indication
     Dates: start: 20221031

REACTIONS (4)
  - Urinary retention [Unknown]
  - Petit mal epilepsy [Unknown]
  - Tonic convulsion [Unknown]
  - Constipation [Unknown]

NARRATIVE: CASE EVENT DATE: 20221130
